FAERS Safety Report 17084477 (Version 1)
Quarter: 2019Q4

REPORT INFORMATION
  Report Type: Report from Study
  Country: US (occurrence: US)
  Receive Date: 20191127
  Receipt Date: 20191127
  Transmission Date: 20200122
  Serious: Yes (Other)
  Sender: FDA-Public Use
  Company Number: US-GLAXOSMITHKLINE-US2019TSO213031

PATIENT
  Sex: Female

DRUGS (1)
  1. ROLAPITANT HYDROCHLORIDE [Suspect]
     Active Substance: ROLAPITANT
     Indication: PRODUCT USED FOR UNKNOWN INDICATION
     Dosage: 180 MG, Q3WEEKS
     Route: 065

REACTIONS (24)
  - Anxiety [Unknown]
  - Lacrimation increased [Unknown]
  - Alpha 1 globulin decreased [Unknown]
  - Hiatus hernia [Unknown]
  - Albumin globulin ratio increased [Unknown]
  - Night sweats [Unknown]
  - Rash [Unknown]
  - Metastatic neoplasm [Unknown]
  - Disease progression [Unknown]
  - Alopecia [Unknown]
  - Mean cell haemoglobin concentration decreased [Unknown]
  - Palpable purpura [Unknown]
  - White blood cell count decreased [Unknown]
  - Lymphocyte percentage decreased [Unknown]
  - Blood glucose increased [Unknown]
  - Glomerular filtration rate decreased [Unknown]
  - Erythema [Unknown]
  - Pelvic pain [Unknown]
  - Skin hyperpigmentation [Unknown]
  - Red cell distribution width increased [Unknown]
  - Lymphocyte count decreased [Unknown]
  - Protein total decreased [Unknown]
  - Neutrophil percentage increased [Unknown]
  - Monocyte percentage increased [Unknown]

NARRATIVE: CASE EVENT DATE: 20191004
